FAERS Safety Report 10755636 (Version 1)
Quarter: 2015Q1

REPORT INFORMATION
  Report Type: Spontaneous
  Country: US (occurrence: US)
  Receive Date: 20150202
  Receipt Date: 20150202
  Transmission Date: 20150721
  Serious: No
  Sender: FDA-Public Use
  Company Number: US-TEVA-537738USA

PATIENT
  Age: 47 Year
  Sex: Female
  Weight: 113.5 kg

DRUGS (2)
  1. SYNTHROID [Concomitant]
     Active Substance: LEVOTHYROXINE SODIUM
     Indication: HYPOTHYROIDISM
  2. COPAXONE [Suspect]
     Active Substance: GLATIRAMER ACETATE
     Indication: RELAPSING-REMITTING MULTIPLE SCLEROSIS
     Dates: start: 201407

REACTIONS (8)
  - Central nervous system lesion [Unknown]
  - Musculoskeletal pain [Unknown]
  - Back pain [Unknown]
  - Arthralgia [Unknown]
  - Headache [Unknown]
  - Tendon pain [Unknown]
  - Nausea [Unknown]
  - Spinal pain [Unknown]

NARRATIVE: CASE EVENT DATE: 201501
